FAERS Safety Report 22109761 (Version 1)
Quarter: 2023Q1

REPORT INFORMATION
  Report Type: Report from Study
  Country: US (occurrence: US)
  Receive Date: 20230317
  Receipt Date: 20230317
  Transmission Date: 20230418
  Serious: Yes (Hospitalization)
  Sender: FDA-Public Use
  Company Number: US-PFIZER INC-PV202300046188

PATIENT
  Age: 61 Year
  Sex: Female
  Weight: 61.2 kg

DRUGS (14)
  1. IRINOTECAN HYDROCHLORIDE [Suspect]
     Active Substance: IRINOTECAN HYDROCHLORIDE
     Indication: Pancreatic carcinoma metastatic
     Dosage: 262 MG, EVERY 2 WEEKS
     Route: 042
     Dates: start: 20221108, end: 20230214
  2. OXALIPLATIN [Suspect]
     Active Substance: OXALIPLATIN
     Indication: Pancreatic carcinoma metastatic
     Dosage: 150 MG, EVERY 2 WEEKS
     Route: 042
     Dates: start: 20221108, end: 20230214
  3. FLUOROURACIL [Suspect]
     Active Substance: FLUOROURACIL
     Indication: Pancreatic carcinoma metastatic
     Dosage: 4200 MG, EVERY 2 WEEKS
     Route: 042
     Dates: start: 20221108, end: 20230214
  4. LEUCOVORIN CALCIUM [Suspect]
     Active Substance: LEUCOVORIN CALCIUM
     Dosage: 700 MG, EVERY 2 WEEKS
     Route: 042
     Dates: start: 20221108, end: 20230214
  5. BUDIGALIMAB [Suspect]
     Active Substance: BUDIGALIMAB
     Dosage: 500 MG, EVERY 4 WEEKS
     Route: 042
     Dates: start: 20221110, end: 20230202
  6. GILORALIMAB [Suspect]
     Active Substance: GILORALIMAB
     Dosage: 0.3 MG/KG, EVERY 4 WEEKS
     Route: 042
     Dates: start: 20221110, end: 20230202
  7. ZOFRAN [Concomitant]
     Active Substance: ONDANSETRON HYDROCHLORIDE
     Indication: Prophylaxis of nausea and vomiting
     Dosage: 8 MG, EVERY 8 HOURS
     Dates: start: 20221103
  8. COMPAZINE [Concomitant]
     Active Substance: PROCHLORPERAZINE MALEATE
     Indication: Nausea
     Dosage: 10 MG, EVERY 8 HOURS
     Dates: start: 20221110
  9. COMPAZINE [Concomitant]
     Active Substance: PROCHLORPERAZINE MALEATE
     Indication: Vomiting
  10. ACRIVASTINE [Concomitant]
     Active Substance: ACRIVASTINE
     Indication: Premedication
     Dosage: 25 MG, TOTAL
     Dates: start: 20221207
  11. PEPCID [Concomitant]
     Active Substance: FAMOTIDINE
     Indication: Premedication
     Dosage: 20 MG, TOTAL
     Dates: start: 20221207
  12. LOPERAMIDE OXIDE [Concomitant]
     Active Substance: LOPERAMIDE OXIDE
     Indication: Diarrhoea
     Dosage: 2 MG (6/DAYS)
     Dates: start: 20221103
  13. ATIVAN [Concomitant]
     Active Substance: LORAZEPAM
     Indication: Nausea
     Dosage: 0.5 MG (EVERY 6 HOURS)
     Dates: start: 20221103
  14. ATIVAN [Concomitant]
     Active Substance: LORAZEPAM
     Indication: Anxiety

REACTIONS (1)
  - Epiglottitis [Not Recovered/Not Resolved]

NARRATIVE: CASE EVENT DATE: 20230228
